FAERS Safety Report 18615431 (Version 1)
Quarter: 2020Q4

REPORT INFORMATION
  Report Type: Spontaneous
  Country: JP (occurrence: JP)
  Receive Date: 20201214
  Receipt Date: 20201214
  Transmission Date: 20210114
  Serious: Yes (Other)
  Sender: FDA-Public Use
  Company Number: JP-B.I. PHARMACEUTICALS,INC./RIDGEFIELD-2020-BI-067397

PATIENT
  Age: 48 Year
  Sex: Male

DRUGS (11)
  1. TENOFOVIR DISOPROXIL FUMARATE. [Suspect]
     Active Substance: TENOFOVIR DISOPROXIL FUMARATE
     Indication: HIV INFECTION
     Dosage: QD
     Route: 048
     Dates: start: 20030523, end: 20111124
  2. COMBIVIR [Suspect]
     Active Substance: LAMIVUDINE\ZIDOVUDINE
     Dosage: 2 DOSAGE FORM
     Dates: start: 20090401, end: 20111124
  3. ZERIT [Suspect]
     Active Substance: STAVUDINE
     Indication: HIV INFECTION
     Dosage: #1
     Route: 048
     Dates: start: 19990826, end: 20020522
  4. KALETRA [Suspect]
     Active Substance: LOPINAVIR\RITONAVIR
     Dosage: 2 DOSAGE FORM
     Dates: start: 20061121, end: 20100603
  5. RETROVIR [Concomitant]
     Active Substance: ZIDOVUDINE
     Indication: PRODUCT USED FOR UNKNOWN INDICATION
     Dates: start: 20030523, end: 20090401
  6. COMBIVIR [Suspect]
     Active Substance: LAMIVUDINE\ZIDOVUDINE
     Indication: HIV INFECTION
     Dosage: 2 DOSAGE FORM
     Route: 065
     Dates: start: 20020523, end: 20030522
  7. VIRAMUNE [Suspect]
     Active Substance: NEVIRAPINE
     Dosage: #2
     Route: 048
     Dates: start: 19990920, end: 20030522
  8. KALETRA [Suspect]
     Active Substance: LOPINAVIR\RITONAVIR
     Indication: HIV INFECTION
     Dosage: 2 DOSAGE FORM
     Route: 065
     Dates: start: 20030523, end: 20061120
  9. VIRAMUNE [Suspect]
     Active Substance: NEVIRAPINE
     Indication: HIV INFECTION
     Dosage: QD
     Route: 048
     Dates: start: 19990826, end: 19990919
  10. VIDEX [Suspect]
     Active Substance: DIDANOSINE
     Indication: HIV INFECTION
     Dosage: #1
     Route: 048
     Dates: start: 20010401, end: 20020522
  11. BEZATOL [Suspect]
     Active Substance: BEZAFIBRATE
     Indication: HYPERTRIGLYCERIDAEMIA
     Route: 065
     Dates: start: 20060626, end: 20110610

REACTIONS (3)
  - Lipodystrophy acquired [Not Recovered/Not Resolved]
  - Diarrhoea [Recovered/Resolved]
  - Hepatic function abnormal [Recovering/Resolving]

NARRATIVE: CASE EVENT DATE: 2010
